FAERS Safety Report 12056646 (Version 2)
Quarter: 2016Q1

REPORT INFORMATION
  Report Type: Report from Study
  Country: US (occurrence: US)
  Receive Date: 20160209
  Receipt Date: 20160308
  Transmission Date: 20160526
  Serious: Yes (Death, Hospitalization)
  Sender: FDA-Public Use
  Company Number: US-ACTELION-A-US2016-131016

PATIENT
  Age: 56 Year
  Sex: Female

DRUGS (22)
  1. AMBRISENTAN [Concomitant]
     Active Substance: AMBRISENTAN
     Dosage: 5 MG, UNK
  2. BUSPIRONE [Concomitant]
     Active Substance: BUSPIRONE HYDROCHLORIDE
     Dosage: 10 MG, UNK
  3. FERROUS SULFATE [Concomitant]
     Active Substance: FERROUS SULFATE\FERROUS SULFATE, DRIED
  4. ASPIRIN. [Concomitant]
     Active Substance: ASPIRIN
     Dosage: 81 MG, UNK
  5. DILTIAZEM [Concomitant]
     Active Substance: DILTIAZEM
     Dosage: 240 MG, UNK
  6. NAPROXEN. [Concomitant]
     Active Substance: NAPROXEN
     Dosage: 220 MG, UNK
  7. ATENOLOL. [Concomitant]
     Active Substance: ATENOLOL
  8. CETIRIZINE [Concomitant]
     Active Substance: CETIRIZINE HYDROCHLORIDE
     Dosage: 10 MG, UNK
  9. KLOR-CON [Concomitant]
     Active Substance: POTASSIUM CHLORIDE
  10. RANITIDINE [Concomitant]
     Active Substance: RANITIDINE\RANITIDINE HYDROCHLORIDE
     Dosage: 300 MG, UNK
  11. SILDENAFIL. [Concomitant]
     Active Substance: SILDENAFIL
     Dosage: 20 MG, UNK
  12. AZATHIOPRINE. [Concomitant]
     Active Substance: AZATHIOPRINE
  13. EZETIMIBE. [Concomitant]
     Active Substance: EZETIMIBE
     Dosage: 10 MG, UNK
  14. PREDNISONE. [Concomitant]
     Active Substance: PREDNISONE
     Dosage: 10 MG, UNK
  15. GLUCOPHAGE [Concomitant]
     Active Substance: METFORMIN HYDROCHLORIDE
  16. OXYGEN. [Concomitant]
     Active Substance: OXYGEN
  17. SERTRALINE [Concomitant]
     Active Substance: SERTRALINE HYDROCHLORIDE
     Dosage: 50 MG, UNK
  18. COLCRYS [Concomitant]
     Active Substance: COLCHICINE
  19. OXYCODONE [Concomitant]
     Active Substance: OXYCODONE
     Dosage: 325 MG, UNK
  20. TORSEMIDE. [Concomitant]
     Active Substance: TORSEMIDE
     Dosage: 100 MG, UNK
  21. MACITENTAN [Suspect]
     Active Substance: MACITENTAN
     Indication: PULMONARY ARTERIAL HYPERTENSION
     Dosage: 10 MG, QD
     Route: 048
     Dates: start: 20151027
  22. ZOLPIDEM [Concomitant]
     Active Substance: ZOLPIDEM\ZOLPIDEM TARTRATE
     Dosage: 5 MG, UNK

REACTIONS (2)
  - Oxygen consumption increased [Recovering/Resolving]
  - Death [Fatal]
